FAERS Safety Report 7448345-5 (Version None)
Quarter: 2011Q2

REPORT INFORMATION
  Report Type: 
  Country: None (occurrence: None)
  Receive Date: 20110429
  Receipt Date: 20100903
  Transmission Date: 20111010
  Serious: No
  Sender: FDA-Public Use
  Company Number: US-ASTRAZENECA-2010SE21478

PATIENT
  Sex: Female

DRUGS (1)
  1. NEXIUM [Suspect]
     Indication: EROSIVE OESOPHAGITIS
     Route: 048
     Dates: start: 19950101

REACTIONS (4)
  - DYSPEPSIA [None]
  - OEDEMA PERIPHERAL [None]
  - DRUG DOSE OMISSION [None]
  - PHARYNGEAL EROSION [None]
